FAERS Safety Report 14608236 (Version 1)
Quarter: 2018Q1

REPORT INFORMATION
  Report Type: Spontaneous
  Country: US (occurrence: US)
  Receive Date: 20180307
  Receipt Date: 20180307
  Transmission Date: 20180509
  Serious: No
  Sender: FDA-Public Use
  Company Number: US-TEVA-2018-US-857618

PATIENT
  Sex: Female

DRUGS (1)
  1. GALANTAMINE. [Suspect]
     Active Substance: GALANTAMINE

REACTIONS (1)
  - Dysphagia [Unknown]
